FAERS Safety Report 11858153 (Version 1)
Quarter: 2015Q4

REPORT INFORMATION
  Report Type: Spontaneous
  Country: US (occurrence: US)
  Receive Date: 20151222
  Receipt Date: 20151222
  Transmission Date: 20160305
  Serious: No
  Sender: FDA-Public Use
  Company Number: US-TEVA-584776USA

PATIENT
  Age: 69 Year
  Sex: Male

DRUGS (2)
  1. TRAZODONE [Suspect]
     Active Substance: TRAZODONE HYDROCHLORIDE
     Indication: INSOMNIA
  2. TRAZODONE [Suspect]
     Active Substance: TRAZODONE HYDROCHLORIDE
     Indication: SLEEP DISORDER
     Dosage: 200 MILLIGRAM DAILY;
     Route: 048
     Dates: start: 20150702

REACTIONS (10)
  - Poor quality sleep [Unknown]
  - Wrong patient received medication [Unknown]
  - Nasal congestion [Unknown]
  - Feeling drunk [Unknown]
  - Drug ineffective [Unknown]
  - Somnolence [Unknown]
  - Dizziness [Unknown]
  - Dry mouth [Unknown]
  - Product dosage form issue [Unknown]
  - Discomfort [Unknown]

NARRATIVE: CASE EVENT DATE: 20150727
